FAERS Safety Report 7724701-2 (Version None)
Quarter: 2011Q3

REPORT INFORMATION
  Report Type: 
  Country: None (occurrence: None)
  Receive Date: 20110901
  Receipt Date: 20110819
  Transmission Date: 20111222
  Serious: Yes (Other)
  Sender: FDA-Public Use
  Company Number: PHEH2011US02037

PATIENT
  Sex: Female

DRUGS (8)
  1. DIOVAN [Suspect]
     Indication: HYPERTENSION
     Route: 048
  2. ANTIHYPERTENSIVES [Suspect]
  3. TEKTURNA [Suspect]
     Dosage: 150 MG, QD
     Route: 048
  4. AGGRENOX [Suspect]
     Indication: CEREBROVASCULAR ACCIDENT
  5. DOXAZOSIN MESYLATE [Suspect]
  6. TEKTURNA [Suspect]
     Indication: HYPERTENSION
     Dosage: 300 MG, QD
     Route: 048
  7. PLAVIX [Suspect]
     Indication: BLOOD CHOLESTEROL
  8. CHOLESTEROL- AND TRIGLYCERIDE REDUCERS [Suspect]

REACTIONS (6)
  - FATIGUE [None]
  - TRANSIENT ISCHAEMIC ATTACK [None]
  - MALAISE [None]
  - ACTIVITIES OF DAILY LIVING IMPAIRED [None]
  - HEAD DISCOMFORT [None]
  - POLLAKIURIA [None]
